FAERS Safety Report 6442194-2 (Version None)
Quarter: 2009Q4

REPORT INFORMATION
  Report Type: 
  Country: None (occurrence: None)
  Receive Date: 20091112
  Receipt Date: 20091028
  Transmission Date: 20100525
  Serious: Yes (Other)
  Sender: FDA-Public Use
  Company Number: DK-1171422

PATIENT
  Sex: Female

DRUGS (3)
  1. TOBRADEX [Suspect]
     Route: 047
     Dates: start: 20070501
  2. XALATAN [Concomitant]
  3. ALPHAGAN (BRIMONIDINE TRATRATE) [Concomitant]

REACTIONS (6)
  - EYE PAIN [None]
  - FATIGUE [None]
  - KERATITIS HERPETIC [None]
  - MALAISE [None]
  - PYREXIA [None]
  - VISUAL IMPAIRMENT [None]
